FAERS Safety Report 16567209 (Version 3)
Quarter: 2019Q3

REPORT INFORMATION
  Report Type: Report from Study
  Country: None (occurrence: DO)
  Receive Date: 20190712
  Receipt Date: 20190725
  Transmission Date: 20191004
  Serious: Yes (Death, Hospitalization, Other)
  Sender: FDA-Public Use
  Company Number: DO-ABBVIE-19K-279-2851518-00

PATIENT
  Age: 48 Year
  Sex: Female

DRUGS (1)
  1. HUMIRA [Suspect]
     Active Substance: ADALIMUMAB
     Indication: COLITIS ULCERATIVE
     Route: 058
     Dates: start: 20140128, end: 2019

REACTIONS (17)
  - Platelet count decreased [Unknown]
  - Malaise [Not Recovered/Not Resolved]
  - Loss of consciousness [Not Recovered/Not Resolved]
  - Gait inability [Unknown]
  - Haematemesis [Not Recovered/Not Resolved]
  - Bone disorder [Unknown]
  - Inappropriate schedule of product administration [Not Recovered/Not Resolved]
  - Pharyngeal ulceration [Unknown]
  - Peripheral swelling [Unknown]
  - Overdose [Fatal]
  - Anaemia [Not Recovered/Not Resolved]
  - Pneumonia [Unknown]
  - Stomatitis [Unknown]
  - Pulmonary oedema [Unknown]
  - Abdominal pain [Not Recovered/Not Resolved]
  - Gastrointestinal disorder [Unknown]
  - Lung infection [Not Recovered/Not Resolved]

NARRATIVE: CASE EVENT DATE: 201906
